FAERS Safety Report 9843516 (Version 1)
Quarter: 2013Q4

REPORT INFORMATION
  Report Type: Spontaneous
  Country: US (occurrence: None)
  Receive Date: 20131219
  Receipt Date: 20131219
  Transmission Date: 20140711
  Serious: Yes (Other)
  Sender: FDA-Public Use
  Company Number: 163-20785-12092007

PATIENT
  Age: 68 Year
  Sex: Female
  Weight: 75.75 kg

DRUGS (6)
  1. THALOMID (THALIDOMIDE) (200 MILLIGRAM, CAPSULES) [Suspect]
     Indication: PLASMA CELL MYELOMA
     Route: 048
     Dates: start: 20120915
  2. ASPIRIN (ACETYLSALICYLIC ACID) [Concomitant]
  3. DITROPAN (OXYBUTYNIN) [Concomitant]
  4. DEXAMETHASONE (DEXAMETHASONE) [Concomitant]
  5. MULTIVITAMINS (MULTIVITAMINS) [Concomitant]
  6. VITAMIN B-12 (CYANOCOBALAMIN) [Concomitant]

REACTIONS (3)
  - Drug dose omission [None]
  - Dizziness [None]
  - Dyspnoea [None]
